FAERS Safety Report 6115614-0 (Version None)
Quarter: 2009Q1

REPORT INFORMATION
  Report Type: 
  Country: None (occurrence: None)
  Receive Date: 20090313
  Receipt Date: 20090303
  Transmission Date: 20090719
  Serious: Yes (Other)
  Sender: FDA-Public Use
  Company Number: PHHY2009GB07896

PATIENT
  Sex: Female

DRUGS (1)
  1. SYNTOMETRINE [Suspect]
     Dosage: UNK
     Dates: start: 20080801

REACTIONS (1)
  - UTERINE ATONY [None]
